FAERS Safety Report 4718913-X (Version None)
Quarter: 2005Q3

REPORT INFORMATION
  Report Type: 
  Country: None (occurrence: None)
  Receive Date: 20050719
  Receipt Date: 20050707
  Transmission Date: 20060218
  Serious: Yes (Hospitalization)
  Sender: FDA-Public Use
  Company Number: 2005098803

PATIENT
  Age: 77 Year
  Sex: Female

DRUGS (2)
  1. ALDACTONE [Suspect]
     Indication: HYPERTENSION
     Dosage: 100 MG (100 MG, DAILY, INTERVAL: EVERY DAY) ORAL
     Route: 048
     Dates: start: 20040101, end: 20040823
  2. COZAAR [Suspect]
     Indication: HYPERTENSION
     Dosage: 25 MG (50 MG, DAILY INTERVAL: EVERY DAY) ORAL
     Route: 048
     Dates: start: 20040101, end: 20040823

REACTIONS (2)
  - DRUG INTERACTION [None]
  - HYPERKALAEMIA [None]
